FAERS Safety Report 6335402-X (Version None)
Quarter: 2009Q3

REPORT INFORMATION
  Report Type: 
  Country: None (occurrence: None)
  Receive Date: 20090831
  Receipt Date: 20090824
  Transmission Date: 20100115
  Serious: Yes (Other)
  Sender: FDA-Public Use
  Company Number: PHEH2009US04493

PATIENT
  Sex: Female
  Weight: 91 kg

DRUGS (3)
  1. STARLIX [Suspect]
     Dosage: UNK
  2. LANTUS [Suspect]
     Indication: DIABETES MELLITUS
     Dosage: 70 U, UNK
     Route: 058
  3. LANTUS [Suspect]
     Dosage: 70 U, UNK
     Route: 058

REACTIONS (4)
  - BLOOD GLUCOSE INCREASED [None]
  - DIABETES MELLITUS [None]
  - DISEASE PROGRESSION [None]
  - WEIGHT INCREASED [None]
